FAERS Safety Report 16134905 (Version 1)
Quarter: 2019Q1

REPORT INFORMATION
  Report Type: Spontaneous
  Country: FR (occurrence: FR)
  Receive Date: 20190329
  Receipt Date: 20190329
  Transmission Date: 20190418
  Serious: Yes (Other)
  Sender: FDA-Public Use
  Company Number: FR-ROCHE-2286922

PATIENT
  Age: 79 Year
  Sex: Male

DRUGS (2)
  1. CEFOTAXIME [Suspect]
     Active Substance: CEFOTAXIME SODIUM
     Indication: PYELONEPHRITIS
     Route: 042
     Dates: start: 20181229, end: 20190109
  2. TAMIFLU [Suspect]
     Active Substance: OSELTAMIVIR PHOSPHATE
     Indication: ANTIVIRAL TREATMENT
     Route: 048
     Dates: start: 20181231, end: 20190108

REACTIONS (2)
  - Cell death [Recovering/Resolving]
  - Cholestasis [Recovering/Resolving]

NARRATIVE: CASE EVENT DATE: 20190103
